FAERS Safety Report 13138412 (Version 6)
Quarter: 2017Q4

REPORT INFORMATION
  Report Type: Spontaneous
  Country: GB (occurrence: GB)
  Receive Date: 20170123
  Receipt Date: 20171207
  Transmission Date: 20180320
  Serious: Yes (Death, Hospitalization, Other)
  Sender: FDA-Public Use
  Company Number: PHFR2017GB000530

PATIENT
  Age: 50 Year
  Sex: Female
  Weight: 100 kg

DRUGS (4)
  1. AFINITOR [Suspect]
     Active Substance: EVEROLIMUS
     Indication: BREAST CANCER METASTATIC
     Dosage: 5 MG, QD
     Route: 048
     Dates: start: 20160210, end: 20161012
  2. SERTRALINE [Concomitant]
     Active Substance: SERTRALINE HYDROCHLORIDE
     Indication: DEPRESSION
     Dosage: 50 MG, QD
     Route: 048
  3. XGEVA [Concomitant]
     Active Substance: DENOSUMAB
     Indication: METASTASES TO BONE
     Dosage: 120 MG, UNK
     Route: 058
     Dates: start: 20130110
  4. OMEPRAZOLE. [Concomitant]
     Active Substance: OMEPRAZOLE
     Indication: DYSPEPSIA
     Dosage: 20 MG, QD
     Route: 048

REACTIONS (10)
  - Dyspnoea [Recovered/Resolved]
  - Breast cancer metastatic [Fatal]
  - Chest pain [Recovered/Resolved]
  - Cardiomegaly [Not Recovered/Not Resolved]
  - Neutrophilia [Recovered/Resolved]
  - Malignant neoplasm progression [Fatal]
  - Pneumonitis [Recovered/Resolved]
  - Metastases to spine [Not Recovered/Not Resolved]
  - Pericardial disease [Unknown]
  - Pleural thickening [Unknown]

NARRATIVE: CASE EVENT DATE: 20160525
